FAERS Safety Report 7520842-3 (Version None)
Quarter: 2011Q2

REPORT INFORMATION
  Report Type: 
  Country: None (occurrence: None)
  Receive Date: 20110603
  Receipt Date: 20100909
  Transmission Date: 20111010
  Serious: Yes (Other)
  Sender: FDA-Public Use
  Company Number: US-BAYER-201030603NA

PATIENT
  Age: 36 Year
  Sex: Female
  Weight: 68 kg

DRUGS (4)
  1. VITAMINS [Concomitant]
  2. YAZ [Suspect]
     Dosage: UNK
     Route: 048
     Dates: start: 20061001, end: 20070201
  3. PROCHLORPERAZINE TAB [Concomitant]
     Dosage: 10 MG (DAILY DOSE), ,
  4. PROTONIX [Concomitant]

REACTIONS (6)
  - BILIARY DYSKINESIA [None]
  - VOMITING [None]
  - CHOLECYSTITIS CHRONIC [None]
  - BILIARY COLIC [None]
  - NAUSEA [None]
  - GASTROOESOPHAGEAL REFLUX DISEASE [None]
